FAERS Safety Report 20051184 (Version 10)
Quarter: 2022Q2

REPORT INFORMATION
  Report Type: Spontaneous
  Country: US (occurrence: US)
  Receive Date: 20211110
  Receipt Date: 20220623
  Transmission Date: 20220721
  Serious: No
  Sender: FDA-Public Use
  Company Number: US-GLAXOSMITHKLINE-US2021AMR226212

PATIENT
  Sex: Female

DRUGS (2)
  1. ZEJULA [Suspect]
     Active Substance: NIRAPARIB
     Indication: Ovarian cancer
     Dosage: 200 MG, QD (2-100 MG CAPSULES)
     Route: 048
     Dates: start: 20211029, end: 20211229
  2. ZEJULA [Suspect]
     Active Substance: NIRAPARIB
     Dosage: 100 MG, QD (100 MG CAPSULE DAILY)
     Dates: start: 20220120

REACTIONS (26)
  - Nausea [Not Recovered/Not Resolved]
  - Vomiting [Not Recovered/Not Resolved]
  - Insomnia [Not Recovered/Not Resolved]
  - Anxiety [Not Recovered/Not Resolved]
  - Libido decreased [Not Recovered/Not Resolved]
  - Decreased appetite [Not Recovered/Not Resolved]
  - Hypertension [Not Recovered/Not Resolved]
  - Tachycardia [Unknown]
  - Fatigue [Not Recovered/Not Resolved]
  - Product after taste [Not Recovered/Not Resolved]
  - Palpitations [Unknown]
  - Abdominal discomfort [Not Recovered/Not Resolved]
  - Bone pain [Recovering/Resolving]
  - Pain in extremity [Not Recovered/Not Resolved]
  - Abdominal pain upper [Not Recovered/Not Resolved]
  - Asthenia [Not Recovered/Not Resolved]
  - Amnesia [Unknown]
  - Memory impairment [Not Recovered/Not Resolved]
  - Condition aggravated [Unknown]
  - Peripheral swelling [Unknown]
  - Pigmentation disorder [Unknown]
  - Headache [Not Recovered/Not Resolved]
  - Anaemia [Recovered/Resolved]
  - Decreased activity [Not Recovered/Not Resolved]
  - Heart rate increased [Not Recovered/Not Resolved]
  - Red blood cell count decreased [Recovered/Resolved]
